FAERS Safety Report 11364952 (Version 1)
Quarter: 2015Q3

REPORT INFORMATION
  Report Type: Spontaneous
  Country: ES (occurrence: ES)
  Receive Date: 20150811
  Receipt Date: 20150811
  Transmission Date: 20151125
  Serious: Yes (Life-Threatening, Hospitalization)
  Sender: FDA-Public Use
  Company Number: ES-FRI-1000078841

PATIENT
  Age: 26 Year
  Sex: Female

DRUGS (3)
  1. RISPERIDONE. [Concomitant]
     Active Substance: RISPERIDONE
     Dates: end: 201507
  2. ASENAPINE [Suspect]
     Active Substance: ASENAPINE
     Indication: DE LANGE^S SYNDROME
     Dosage: 15 MG
     Route: 060
     Dates: start: 201507, end: 201507
  3. DUMIROX [Suspect]
     Active Substance: FLUVOXAMINE MALEATE
     Indication: DE LANGE^S SYNDROME
     Route: 048
     Dates: start: 201507

REACTIONS (3)
  - Off label use [Recovered/Resolved with Sequelae]
  - Neuroleptic malignant syndrome [Recovered/Resolved with Sequelae]
  - Drug interaction [Recovered/Resolved with Sequelae]

NARRATIVE: CASE EVENT DATE: 201507
